FAERS Safety Report 7516025-3 (Version None)
Quarter: 2011Q2

REPORT INFORMATION
  Report Type: 
  Country: None (occurrence: None)
  Receive Date: 20110520
  Receipt Date: 20110510
  Transmission Date: 20111010
  Serious: Yes (Hospitalization)
  Sender: FDA-Public Use
  Company Number: UTC-006985

PATIENT
  Age: 77 Year
  Sex: Female
  Weight: 71.81 kg

DRUGS (3)
  1. PLAVIX [Concomitant]
  2. DIURETICS (DIURETICS) [Concomitant]
  3. REMODULIN [Suspect]
     Indication: PULMONARY ARTERIAL HYPERTENSION
     Dosage: 73.44 UG/KG (0.051 UG/KG, 1 IN 1 MIN) INTRAVENOUS
     Route: 042
     Dates: start: 20080404

REACTIONS (1)
  - GASTROINTESTINAL HAEMORRHAGE [None]
